FAERS Safety Report 15964369 (Version 2)
Quarter: 2019Q1

REPORT INFORMATION
  Report Type: Spontaneous
  Country: FR (occurrence: FR)
  Receive Date: 20190215
  Receipt Date: 20190313
  Transmission Date: 20190417
  Serious: Yes (Other)
  Sender: FDA-Public Use
  Company Number: FR-PROVELL PHARMACEUTICALS-2062717

PATIENT
  Age: 74 Year
  Sex: Female

DRUGS (1)
  1. EUTHYROX [Suspect]
     Active Substance: LEVOTHYROXINE SODIUM
     Indication: THYROID DISORDER
     Dates: start: 2017

REACTIONS (13)
  - Fall [None]
  - Mobility decreased [None]
  - Gamma-glutamyltransferase increased [None]
  - Fatigue [None]
  - Tremor [None]
  - Impaired driving ability [None]
  - Balance disorder [None]
  - C-reactive protein increased [None]
  - Blood cholesterol increased [None]
  - Blood thyroid stimulating hormone increased [None]
  - Deafness [None]
  - Asthenia [None]
  - Blood uric acid increased [None]

NARRATIVE: CASE EVENT DATE: 2017
